FAERS Safety Report 10012665 (Version 2)
Quarter: 2014Q2

REPORT INFORMATION
  Report Type: Spontaneous
  Country: GB (occurrence: GB)
  Receive Date: 20140314
  Receipt Date: 20140403
  Transmission Date: 20141212
  Serious: Yes (Other)
  Sender: FDA-Public Use
  Company Number: GB-WATSON-2014-04422

PATIENT
  Age: 49 Year
  Sex: Male

DRUGS (9)
  1. ATENOLOL (UNKNOWN) [Suspect]
     Indication: HYPERTENSION
     Dosage: 50 MG, DAILY
     Route: 065
     Dates: start: 201308
  2. ATENOLOL (UNKNOWN) [Suspect]
     Dosage: 100 MG, DAILY; TABLET
     Route: 048
     Dates: start: 1986, end: 201212
  3. ATENOLOL (UNKNOWN) [Suspect]
     Dosage: 50 MG, UNKNOWN
     Route: 065
  4. ATENOLOL (UNKNOWN) [Suspect]
     Dosage: 25 MG, UNKNOWN
     Route: 065
  5. CHLORTALIDONE [Concomitant]
     Indication: PRODUCT USED FOR UNKNOWN INDICATION
     Dosage: 25 MG, UNKNOWN
     Route: 065
  6. DIAZEPAM [Concomitant]
     Indication: PRODUCT USED FOR UNKNOWN INDICATION
     Dosage: UNK
     Route: 065
  7. NIFEDIPINE [Concomitant]
     Indication: PRODUCT USED FOR UNKNOWN INDICATION
     Dosage: UNK
     Route: 065
  8. OLMETEC [Concomitant]
     Indication: PRODUCT USED FOR UNKNOWN INDICATION
     Dosage: UNK
     Route: 065
  9. RAMIPRIL [Concomitant]
     Indication: PRODUCT USED FOR UNKNOWN INDICATION
     Dosage: UNK
     Route: 065

REACTIONS (10)
  - Muscle contractions involuntary [Recovered/Resolved]
  - Blood pressure increased [Recovered/Resolved]
  - Tachycardia [Recovered/Resolved]
  - Heart rate increased [Recovered/Resolved]
  - Nervousness [Recovered/Resolved]
  - Anxiety [Recovered/Resolved]
  - Feeling abnormal [Recovered/Resolved]
  - Malaise [Recovered/Resolved]
  - Norepinephrine increased [Recovered/Resolved]
  - Drug withdrawal syndrome [Recovered/Resolved]
